FAERS Safety Report 16473869 (Version 4)
Quarter: 2020Q2

REPORT INFORMATION
  Report Type: Spontaneous
  Country: US (occurrence: US)
  Receive Date: 20190625
  Receipt Date: 20200429
  Transmission Date: 20200713
  Serious: Yes (Other)
  Sender: FDA-Public Use
  Company Number: US-JNJFOC-20190625735

PATIENT
  Age: 71 Year
  Sex: Female

DRUGS (2)
  1. PILOCARPINE. [Concomitant]
     Active Substance: PILOCARPINE
     Indication: DRY MOUTH
     Dates: start: 2004
  2. REMICADE [Suspect]
     Active Substance: INFLIXIMAB
     Indication: PRODUCT USED FOR UNKNOWN INDICATION
     Route: 042
     Dates: start: 201806

REACTIONS (5)
  - Pruritus [Recovered/Resolved]
  - Rectal haemorrhage [Recovered/Resolved]
  - Drug specific antibody present [Not Recovered/Not Resolved]
  - Abdominal distension [Recovered/Resolved]
  - Alopecia [Unknown]
